FAERS Safety Report 21492812 (Version 1)
Quarter: 2022Q4

REPORT INFORMATION
  Report Type: Spontaneous
  Country: US (occurrence: None)
  Receive Date: 20221021
  Receipt Date: 20221021
  Transmission Date: 20230113
  Serious: No
  Sender: FDA-Public Use
  Company Number: 2022A345162

PATIENT

DRUGS (1)
  1. EVUSHELD [Suspect]
     Active Substance: CILGAVIMAB\TIXAGEVIMAB
     Dosage: 600 MG COMBINED DOSE OF TIXAGEVIMAB 300 MG AND CILGAVIMAB 300 MG
     Route: 030

REACTIONS (1)
  - Incorrect dose administered [Unknown]
